FAERS Safety Report 9181213 (Version 2)
Quarter: 2013Q1

REPORT INFORMATION
  Report Type: Spontaneous
  Country: US (occurrence: US)
  Receive Date: 20130322
  Receipt Date: 20130322
  Transmission Date: 20140127
  Serious: No
  Sender: FDA-Public Use
  Company Number: US-MYLANLABS-2012S1019624

PATIENT
  Age: 66 Year
  Sex: Female
  Weight: 72.58 kg

DRUGS (5)
  1. EMSAM (SELEGILINE TRANSDERMAL SYSTEM) [Suspect]
     Indication: DEPRESSION
     Route: 062
     Dates: start: 20120718, end: 201207
  2. EMSAM (SELEGILINE TRANSDERMAL SYSTEM) [Suspect]
     Indication: DEPRESSION
     Route: 062
     Dates: start: 201207
  3. CYCLOBENZAPRINE HYDROCHLORIDE TABLETS, USP [Suspect]
     Indication: MUSCLE RELAXANT THERAPY
     Dates: end: 201207
  4. IBUPROFEN [Concomitant]
     Indication: PAIN
  5. CLONAZEPAM [Concomitant]
     Indication: ANXIETY

REACTIONS (6)
  - Retinal oedema [Not Recovered/Not Resolved]
  - Vision blurred [Recovering/Resolving]
  - Influenza like illness [Recovered/Resolved]
  - Insomnia [Not Recovered/Not Resolved]
  - Incorrect drug dosage form administered [Not Recovered/Not Resolved]
  - Drug interaction [Recovered/Resolved]
